FAERS Safety Report 7236797-5 (Version None)
Quarter: 2011Q1

REPORT INFORMATION
  Report Type: 
  Country: None (occurrence: None)
  Receive Date: 20110120
  Receipt Date: 20110119
  Transmission Date: 20110831
  Serious: Yes (Death, Other)
  Sender: FDA-Public Use
  Company Number: GB-ABBOTT-11P-167-0699437-00

PATIENT
  Sex: Female
  Weight: 58 kg

DRUGS (2)
  1. METHOTREXATE [Concomitant]
     Indication: PRODUCT USED FOR UNKNOWN INDICATION
     Dates: start: 20020916
  2. HUMIRA [Suspect]
     Indication: RHEUMATOID ARTHRITIS
     Route: 058
     Dates: start: 20031115

REACTIONS (4)
  - RENAL FAILURE CHRONIC [None]
  - ATRIAL FIBRILLATION [None]
  - MYOCARDIAL ISCHAEMIA [None]
  - CARDIAC FAILURE CONGESTIVE [None]
